FAERS Safety Report 14242076 (Version 1)
Quarter: 2017Q4

REPORT INFORMATION
  Report Type: Report from Study
  Country: HU (occurrence: HU)
  Receive Date: 20171201
  Receipt Date: 20171201
  Transmission Date: 20180321
  Serious: Yes (Disabling)
  Sender: FDA-Public Use
  Company Number: HU-TEVA-2017-HU-826580

PATIENT
  Age: 29 Year
  Sex: Female
  Weight: 62 kg

DRUGS (1)
  1. COPAXONE [Suspect]
     Active Substance: GLATIRAMER ACETATE
     Indication: MULTIPLE SCLEROSIS
     Route: 058
     Dates: start: 20160922, end: 20171115

REACTIONS (3)
  - Injection site scar [Not Recovered/Not Resolved]
  - Injection site indentation [Not Recovered/Not Resolved]
  - Injection site ulcer [Not Recovered/Not Resolved]

NARRATIVE: CASE EVENT DATE: 20170515
